FAERS Safety Report 7071298-9 (Version None)
Quarter: 2010Q4

REPORT INFORMATION
  Report Type: 
  Country: None (occurrence: None)
  Receive Date: 20101028
  Receipt Date: 20101028
  Transmission Date: 20110411
  Serious: Yes (Other)
  Sender: FDA-Public Use
  Company Number: None

PATIENT
  Age: 57 Year
  Sex: Female
  Weight: 56.4 kg

DRUGS (9)
  1. METOPROLOL TARTRATE [Suspect]
     Indication: MYOCARDIAL INFARCTION
     Dosage: 12.5MG (1/2 TABLET) TWICE DAILY BY MOUTH
     Route: 048
     Dates: start: 20100721, end: 20100722
  2. DILTIAZEM [Concomitant]
  3. SIMVASTATIN [Concomitant]
  4. PLAVIX [Concomitant]
  5. ASPIRIN [Suspect]
  6. FLUTICASONE PROPIONATE [Concomitant]
  7. NORETHINDRONE ACETATE [Concomitant]
  8. ESTRADIOL [Concomitant]
  9. ADVAIR DISKUS 100/50 [Concomitant]

REACTIONS (2)
  - ASTHMA [None]
  - PROLONGED EXPIRATION [None]
